FAERS Safety Report 8525999 (Version 4)
Quarter: 2013Q2

REPORT INFORMATION
  Report Type: Spontaneous
  Country: CA (occurrence: CA)
  Receive Date: 20120423
  Receipt Date: 20130529
  Transmission Date: 20140414
  Serious: Yes (Other)
  Sender: FDA-Public Use
  Company Number: CA-ROCHE-CID000000002002044

PATIENT
  Age: 39 Year
  Sex: Male

DRUGS (2)
  1. XOLAIR [Suspect]
     Indication: ASTHMA
     Route: 058
     Dates: start: 20061113
  2. XOLAIR [Suspect]
     Route: 058
     Dates: start: 20061214

REACTIONS (2)
  - Rotator cuff syndrome [Unknown]
  - Musculoskeletal pain [Unknown]
